FAERS Safety Report 25795512 (Version 3)
Quarter: 2025Q4

REPORT INFORMATION
  Report Type: Report from Study
  Country: JP (occurrence: JP)
  Receive Date: 20250912
  Receipt Date: 20251210
  Transmission Date: 20260118
  Serious: Yes (Hospitalization)
  Sender: GILEAD
  Company Number: JP-CMIC-GS-JP-569-6813-00045-00003

PATIENT
  Age: 43 Year
  Sex: Female
  Weight: 64.9 kg

DRUGS (17)
  1. SACITUZUMAB GOVITECAN-HZIY [Suspect]
     Active Substance: SACITUZUMAB GOVITECAN-HZIY
     Indication: Triple negative breast cancer
     Dosage: 600 MG
     Route: 041
     Dates: start: 20250805, end: 20250812
  2. SACITUZUMAB GOVITECAN-HZIY [Suspect]
     Active Substance: SACITUZUMAB GOVITECAN-HZIY
     Dosage: 440 MG
     Route: 041
     Dates: start: 20250825, end: 20250901
  3. SACITUZUMAB GOVITECAN-HZIY [Suspect]
     Active Substance: SACITUZUMAB GOVITECAN-HZIY
     Dosage: 440 MG
     Route: 041
     Dates: start: 20250916, end: 20250922
  4. MS CONTIN [Suspect]
     Active Substance: MORPHINE SULFATE
     Indication: Disease complication
     Dosage: 40 MG
     Route: 048
     Dates: start: 20251006
  5. PEGFILGRASTIM [Concomitant]
     Active Substance: PEGFILGRASTIM
     Indication: Prophylaxis
     Dosage: 3.6 MG
     Dates: start: 20250812, end: 20250922
  6. PALONOSETRON HYDROCHLORIDE [Concomitant]
     Active Substance: PALONOSETRON HYDROCHLORIDE
     Indication: Prophylaxis
     Dosage: 0.75 MG
     Route: 042
     Dates: start: 20250805, end: 20250922
  7. DEXAMETHASONE [Concomitant]
     Active Substance: DEXAMETHASONE
     Indication: Prophylaxis
     Dosage: 9.9 MG
     Route: 042
     Dates: start: 20250805, end: 20250922
  8. FOSNETUPITANT CHLORIDE HYDROCHLORIDE [Concomitant]
     Active Substance: FOSNETUPITANT CHLORIDE HYDROCHLORIDE
     Indication: Prophylaxis
     Dosage: 235 MG
     Route: 042
     Dates: start: 20250805, end: 20250922
  9. POLARAMINE [Concomitant]
     Active Substance: DEXCHLORPHENIRAMINE MALEATE
     Indication: Prophylaxis
     Dosage: 5 MG
     Route: 042
     Dates: start: 20250805, end: 20250922
  10. OLANZAPINE [Concomitant]
     Active Substance: OLANZAPINE
     Indication: Prophylaxis
     Dosage: 5 MG
     Route: 048
     Dates: start: 20250805, end: 20250919
  11. DEXTROMETHORPHAN HYDROBROMIDE [Concomitant]
     Active Substance: DEXTROMETHORPHAN HYDROBROMIDE
     Indication: Disease complication
     Dosage: 45 MG
     Route: 048
  12. AMBROXOL HYDROCHLORIDE [Concomitant]
     Active Substance: AMBROXOL HYDROCHLORIDE
     Indication: Disease complication
     Dosage: 45 MG
     Route: 048
  13. CODEINE PHOSPHATE [Concomitant]
     Active Substance: CODEINE PHOSPHATE
     Indication: Disease complication
     Dosage: 10 MG
     Route: 048
  14. PRIMPERAN [Concomitant]
     Active Substance: METOCLOPRAMIDE HYDROCHLORIDE
     Indication: Prophylaxis
     Dosage: 20 MG
     Route: 048
     Dates: start: 20250805
  15. MORPHINE HYDROCHLORIDE [Concomitant]
     Active Substance: MORPHINE HYDROCHLORIDE
     Indication: Disease complication
     Dosage: 5 MG
     Route: 048
     Dates: start: 20251006
  16. CARBOCYSTEINE [Concomitant]
     Active Substance: CARBOCYSTEINE
     Indication: Disease complication
     Dosage: 1500 MG
     Route: 048
     Dates: start: 20251006
  17. DAYVIGO [Concomitant]
     Active Substance: LEMBOREXANT
     Indication: Disease complication
     Dosage: 2.5 MG
     Route: 048
     Dates: start: 20250805

REACTIONS (3)
  - Bacterial infection [Recovered/Resolved]
  - Diarrhoea [Recovered/Resolved]
  - Constipation [Not Recovered/Not Resolved]

NARRATIVE: CASE EVENT DATE: 20250817
